FAERS Safety Report 5467246-5 (Version None)
Quarter: 2007Q3

REPORT INFORMATION
  Report Type: 
  Country: None (occurrence: None)
  Receive Date: 20070925
  Receipt Date: 20070918
  Transmission Date: 20080115
  Serious: Yes (Other)
  Sender: FDA-Public Use
  Company Number: PHBS2007JP15535

PATIENT
  Age: 57 Year
  Sex: Female

DRUGS (1)
  1. DICLOFENAC SODIUM [Suspect]
     Indication: RHEUMATOID ARTHRITIS
     Dosage: 75 MG/DAY
     Route: 048

REACTIONS (1)
  - SMALL INTESTINAL STENOSIS [None]
